FAERS Safety Report 5674787-4 (Version None)
Quarter: 2008Q1

REPORT INFORMATION
  Report Type: 
  Country: None (occurrence: None)
  Receive Date: 20080320
  Receipt Date: 20080313
  Transmission Date: 20080703
  Serious: Yes (Hospitalization)
  Sender: FDA-Public Use
  Company Number: SE-ASTRAZENECA-2008SE01394

PATIENT
  Age: 0 Day
  Sex: Male

DRUGS (4)
  1. METOPROLOL TARTRATE [Suspect]
     Route: 064
  2. FELODIPINE [Suspect]
     Route: 064
  3. EFFEXOR [Suspect]
     Route: 064
  4. TRANDATE [Suspect]
     Route: 064

REACTIONS (1)
  - LETHARGY [None]
